FAERS Safety Report 5423429-1 (Version None)
Quarter: 2007Q3

REPORT INFORMATION
  Report Type: 
  Country: None (occurrence: None)
  Receive Date: 20070823
  Receipt Date: 20070813
  Transmission Date: 20080115
  Serious: Yes (Hospitalization, Disabling)
  Sender: FDA-Public Use
  Company Number: JP-NOVOPROD-266511

PATIENT
  Age: 55 Year
  Sex: Female
  Weight: 43 kg

DRUGS (6)
  1. NOVORAPID 30 MIX CHU FLEXPEN [Suspect]
     Indication: TYPE 2 DIABETES MELLITUS
     Dosage: 10 U, QD
     Route: 058
     Dates: start: 20051111
  2. VEGETAMIN B [Concomitant]
     Dates: start: 20051111
  3. AMOBAN [Concomitant]
     Dates: start: 20051111
  4. DEPAS [Concomitant]
     Dates: start: 20051111
  5. GASMOTIN [Concomitant]
     Dates: start: 20051111
  6. KINEDAK [Concomitant]
     Dosage: UNK, UNK
     Dates: start: 20051111

REACTIONS (2)
  - DIABETES INSIPIDUS [None]
  - HYPOGLYCAEMIC COMA [None]
